FAERS Safety Report 5794563-1 (Version None)
Quarter: 2008Q2

REPORT INFORMATION
  Report Type: 
  Country: None (occurrence: None)
  Receive Date: 20080626
  Receipt Date: 20080611
  Transmission Date: 20081010
  Serious: Yes (Hospitalization)
  Sender: FDA-Public Use
  Company Number: 2008S1010027

PATIENT
  Age: 6 Year
  Sex: Male

DRUGS (1)
  1. PHENYTOIN [Suspect]
     Indication: PROPHYLAXIS

REACTIONS (4)
  - COOMBS POSITIVE HAEMOLYTIC ANAEMIA [None]
  - DRUG RASH WITH EOSINOPHILIA AND SYSTEMIC SYMPTOMS [None]
  - HEPATITIS [None]
  - TRANSPLANT REJECTION [None]
